FAERS Safety Report 4768184-3 (Version None)
Quarter: 2005Q3

REPORT INFORMATION
  Report Type: 
  Country: None (occurrence: None)
  Receive Date: 20050908
  Receipt Date: 20050808
  Transmission Date: 20060218
  Serious: Yes (Hospitalization)
  Sender: FDA-Public Use
  Company Number: A03200502422

PATIENT
  Age: 74 Year
  Sex: Female
  Weight: 96.6162 kg

DRUGS (5)
  1. ELOXATIN [Suspect]
     Indication: COLORECTAL CANCER
     Dosage: 85 MG/M2 OTHER - INTRAVENOUS NOS
     Route: 042
     Dates: start: 20050728, end: 20050728
  2. FLUOROURACIL [Concomitant]
  3. LEUCOVORIN [Concomitant]
  4. ONDANSETRON HYDROCHLORIDE [Concomitant]
  5. DEXAMETHASONE [Concomitant]

REACTIONS (7)
  - ANXIETY [None]
  - DYSPNOEA [None]
  - FLUSHING [None]
  - NASOPHARYNGITIS [None]
  - OXYGEN SATURATION DECREASED [None]
  - PULMONARY EMBOLISM [None]
  - SHOULDER PAIN [None]
